FAERS Safety Report 5031687-0 (Version None)
Quarter: 2006Q2

REPORT INFORMATION
  Report Type: 
  Country: None (occurrence: None)
  Receive Date: 20060616
  Receipt Date: 20060606
  Transmission Date: 20061013
  Serious: Yes (Other)
  Sender: FDA-Public Use
  Company Number: US-2005-014937

PATIENT
  Age: 61 Year
  Sex: Female
  Weight: 62.6 kg

DRUGS (5)
  1. CLIMARA [Suspect]
     Indication: HORMONE REPLACEMENT THERAPY
     Dosage: 0.1 MG/D, CONT, TRANSDERMAL
     Route: 062
     Dates: start: 19950101, end: 20000101
  2. PROVERA [Suspect]
     Indication: HORMONE REPLACEMENT THERAPY
     Dosage: 2.5 MG, ORAL
     Route: 048
     Dates: start: 19950101, end: 20000101
  3. ESTRADERM [Concomitant]
     Indication: HORMONE REPLACEMENT THERAPY
     Dosage: 0.1 MG
     Dates: start: 19950101, end: 19960101
  4. SYNTHROID [Concomitant]
  5. ROCALTROL [Concomitant]

REACTIONS (6)
  - BREAST CANCER FEMALE [None]
  - BREAST CANCER IN SITU [None]
  - HYPOAESTHESIA [None]
  - OESTROGEN RECEPTOR ASSAY POSITIVE [None]
  - PROGESTERONE RECEPTOR ASSAY POSITIVE [None]
  - SCAR [None]
